FAERS Safety Report 24390860 (Version 1)
Quarter: 2024Q4

REPORT INFORMATION
  Report Type: Spontaneous
  Country: US (occurrence: US)
  Receive Date: 20241003
  Receipt Date: 20241003
  Transmission Date: 20250114
  Serious: No
  Sender: AMGEN
  Company Number: US-AMGEN-USASP2024195268

PATIENT
  Age: 82 Year
  Sex: Male

DRUGS (8)
  1. REPATHA [Suspect]
     Active Substance: EVOLOCUMAB
     Indication: Blood cholesterol increased
     Dosage: 140 MILLIGRAM, Q2WK
     Route: 058
  2. REPATHA [Suspect]
     Active Substance: EVOLOCUMAB
     Dosage: UNK
     Route: 058
  3. JANUVIA [Concomitant]
     Active Substance: SITAGLIPTIN PHOSPHATE
     Dosage: 10 MILLIGRAM
  4. ACEBUTOLOL [Concomitant]
     Active Substance: ACEBUTOLOL
     Dosage: 400 MILLIGRAM
  5. LOSARTAN [Concomitant]
     Active Substance: LOSARTAN
     Dosage: 50 UNK, BID
  6. PIOGLITAZONE [Concomitant]
     Active Substance: PIOGLITAZONE
     Dosage: 30 MILLIGRAM
  7. AMLODIPINE [Concomitant]
     Active Substance: AMLODIPINE BESYLATE
     Dosage: 2.5 MILLIGRAM
  8. OZEMPIC [Concomitant]
     Active Substance: SEMAGLUTIDE
     Indication: Diabetes mellitus
     Dosage: UNK
     Dates: start: 202409

REACTIONS (2)
  - Device difficult to use [Unknown]
  - Wrong technique in product usage process [Unknown]

NARRATIVE: CASE EVENT DATE: 20240930
